FAERS Safety Report 13671743 (Version 1)
Quarter: 2017Q2

REPORT INFORMATION
  Report Type: Spontaneous
  Country: US (occurrence: US)
  Receive Date: 20170620
  Receipt Date: 20170620
  Transmission Date: 20170830
  Serious: No
  Sender: FDA-Public Use
  Company Number: None

PATIENT
  Age: 72 Year
  Sex: Female

DRUGS (20)
  1. OCALIVA [Suspect]
     Active Substance: OBETICHOLIC ACID
     Indication: BILIARY CIRRHOSIS PRIMARY
     Route: 048
     Dates: start: 20170223
  2. VITAMIN D [Concomitant]
     Active Substance: CHOLECALCIFEROL
  3. IBUPROFEN. [Concomitant]
     Active Substance: IBUPROFEN
  4. URSODIOL. [Concomitant]
     Active Substance: URSODIOL
  5. EZETIMIBE. [Concomitant]
     Active Substance: EZETIMIBE
  6. TRIAMCINOLON CRE [Concomitant]
  7. MIRALAX [Concomitant]
     Active Substance: POLYETHYLENE GLYCOL 3350
  8. OMEGA-3-ACID [Concomitant]
  9. OMEPRAZOLE. [Concomitant]
     Active Substance: OMEPRAZOLE
  10. SENNOSIDES. [Concomitant]
     Active Substance: SENNOSIDES
  11. VITAMIN B COMPLEX [Concomitant]
     Active Substance: CYANOCOBALAMIN\DEXPANTHENOL\NIACINAMIDE\PYRIDOXINE HYDROCHLORIDE\RIBOFLAVIN 5^-PHOSPHATE SODIUM\THIAMINE HYDROCHLORIDE\VITAMIN B COMPLEX
  12. ASPIRIN. [Concomitant]
     Active Substance: ASPIRIN
  13. VITAMIN E [Concomitant]
     Active Substance: .ALPHA.-TOCOPHEROL
  14. SILENOR [Concomitant]
     Active Substance: DOXEPIN HYDROCHLORIDE
  15. VALSARTAN. [Concomitant]
     Active Substance: VALSARTAN
  16. ALPRAZOLAM. [Concomitant]
     Active Substance: ALPRAZOLAM
  17. HYDROXZ HCL [Concomitant]
  18. MILK THISTLE [Concomitant]
     Active Substance: MILK THISTLE
  19. VITAMIN C [Concomitant]
     Active Substance: ASCORBIC ACID
  20. DESONIDE CREAM USP 0.05% [Concomitant]
     Active Substance: DESONIDE

REACTIONS (7)
  - Fatigue [None]
  - Mental disorder [None]
  - Loss of personal independence in daily activities [None]
  - Pruritus [None]
  - Insomnia [None]
  - Somnolence [None]
  - Emotional disorder [None]

NARRATIVE: CASE EVENT DATE: 201702
